FAERS Safety Report 7176914-9 (Version None)
Quarter: 2010Q4

REPORT INFORMATION
  Report Type: 
  Country: None (occurrence: None)
  Receive Date: 20101215
  Receipt Date: 20101215
  Transmission Date: 20110411
  Serious: Yes (Hospitalization)
  Sender: FDA-Public Use
  Company Number: None

PATIENT
  Age: 63 Year
  Sex: Female
  Weight: 80.4 kg

DRUGS (1)
  1. ZYVOX [Suspect]
     Indication: EMPYEMA
     Dosage: 600 MG BID PO
     Route: 048
     Dates: start: 20101123, end: 20101207

REACTIONS (3)
  - LIVER FUNCTION TEST ABNORMAL [None]
  - NEUTROPENIA [None]
  - THROMBOCYTOPENIA [None]
